FAERS Safety Report 12247781 (Version 2)
Quarter: 2016Q2

REPORT INFORMATION
  Report Type: Report from Study
  Country: US (occurrence: US)
  Receive Date: 20160408
  Receipt Date: 20160412
  Transmission Date: 20160815
  Serious: Yes (Other)
  Sender: FDA-Public Use
  Company Number: US-ABBVIE-16K-163-1599292-00

PATIENT
  Age: 54 Year
  Sex: Male

DRUGS (1)
  1. HUMIRA [Suspect]
     Active Substance: ADALIMUMAB
     Indication: RHEUMATOID ARTHRITIS
     Route: 058
     Dates: start: 20150801, end: 20151001

REACTIONS (1)
  - Lupus-like syndrome [Unknown]

NARRATIVE: CASE EVENT DATE: 20150801
